FAERS Safety Report 5703505-6 (Version None)
Quarter: 2008Q2

REPORT INFORMATION
  Report Type: 
  Country: None (occurrence: None)
  Receive Date: 20080411
  Receipt Date: 20080403
  Transmission Date: 20081010
  Serious: Yes (Hospitalization)
  Sender: FDA-Public Use
  Company Number: US-GENENTECH-256795

PATIENT
  Sex: Female
  Weight: 68 kg

DRUGS (3)
  1. AVASTIN [Suspect]
     Indication: OVARIAN CANCER
     Dosage: UNK, Q2W
     Route: 042
     Dates: start: 20070701, end: 20080128
  2. CYTOXAN [Concomitant]
     Indication: DRUG USE FOR UNKNOWN INDICATION
  3. DOXIL [Concomitant]
     Indication: DRUG USE FOR UNKNOWN INDICATION
     Dosage: UNK, Q28D

REACTIONS (1)
  - THROMBOTIC THROMBOCYTOPENIC PURPURA [None]
